FAERS Safety Report 22307297 (Version 1)
Quarter: 2023Q2

REPORT INFORMATION
  Report Type: Spontaneous
  Country: RO (occurrence: RO)
  Receive Date: 20230511
  Receipt Date: 20230511
  Transmission Date: 20230722
  Serious: Yes (Other)
  Sender: FDA-Public Use
  Company Number: RO-ABBVIE-4760613

PATIENT
  Age: 73 Year

DRUGS (2)
  1. VENETOCLAX [Suspect]
     Active Substance: VENETOCLAX
     Indication: Chronic lymphocytic leukaemia stage 3
     Route: 048
     Dates: start: 202209
  2. OBINUTUZUMAB [Concomitant]
     Active Substance: OBINUTUZUMAB
     Indication: Chronic lymphocytic leukaemia stage 3
     Dates: start: 202208

REACTIONS (9)
  - COVID-19 [Unknown]
  - Asthenia [Unknown]
  - Fatigue [Unknown]
  - Weight decreased [Unknown]
  - Bronchitis [Unknown]
  - Hepatitis B [Unknown]
  - Dizziness [Unknown]
  - Chronic lymphocytic leukaemia stage 3 [Unknown]
  - Pallor [Unknown]

NARRATIVE: CASE EVENT DATE: 20221001
